FAERS Safety Report 7926590 (Version 2)
Quarter: 2015Q1

REPORT INFORMATION
  Report Type: Report from Study
  Country: US (occurrence: US)
  Receive Date: 20110502
  Receipt Date: 20150210
  Transmission Date: 20150721
  Serious: No
  Sender: FDA-Public Use
  Company Number: US-ASTRAZENECA-2010SE58302

PATIENT
  Age: 26576 Day
  Sex: Female

DRUGS (1)
  1. NEXIUM [Suspect]
     Active Substance: ESOMEPRAZOLE MAGNESIUM
     Route: 048

REACTIONS (10)
  - Gastrointestinal disorder [Unknown]
  - Hiatus hernia [Unknown]
  - Oesophageal spasm [Unknown]
  - Oesophageal disorder [Unknown]
  - Regurgitation [Unknown]
  - Gastric polyps [Unknown]
  - Malaise [Unknown]
  - Drug dose omission [Unknown]
  - Chest pain [Unknown]
  - Gastrooesophageal reflux disease [Unknown]

NARRATIVE: CASE EVENT DATE: 20140129
